FAERS Safety Report 9224548 (Version 1)
Quarter: 2013Q2

REPORT INFORMATION
  Report Type: Spontaneous
  Country: DE (occurrence: DE)
  Receive Date: 20130411
  Receipt Date: 20130411
  Transmission Date: 20140414
  Serious: Yes (Other)
  Sender: FDA-Public Use
  Company Number: DE-MYLANLABS-2013S1007046

PATIENT
  Age: 81 Year
  Sex: Male
  Weight: 90 kg

DRUGS (4)
  1. LISINOPRIL [Suspect]
     Indication: HYPERTENSION
     Dosage: 2X1
     Route: 048
     Dates: start: 2004
  2. TOVIAZ [Concomitant]
     Indication: BLADDER IRRITATION
     Dosage: 1X1
     Route: 048
     Dates: start: 2011
  3. CITALOPRAM [Concomitant]
     Indication: DEPRESSION
     Dosage: 1X1
     Route: 048
     Dates: start: 201207
  4. METFORMIN 850 [Concomitant]
     Indication: DIABETES MELLITUS
     Dosage: 3X1
     Route: 048
     Dates: start: 2004

REACTIONS (3)
  - Respiration abnormal [Recovered/Resolved]
  - Swelling face [Recovered/Resolved]
  - Swollen tongue [Recovered/Resolved]
